FAERS Safety Report 15725343 (Version 2)
Quarter: 2019Q1

REPORT INFORMATION
  Report Type: Report from Study
  Country: IT (occurrence: IT)
  Receive Date: 20181215
  Receipt Date: 20190117
  Transmission Date: 20190417
  Serious: Yes (Hospitalization)
  Sender: FDA-Public Use
  Company Number: IT-TEVA-2018-IT-986733

PATIENT
  Age: 80 Year
  Sex: Male

DRUGS (3)
  1. LEVETIRACETAM. [Suspect]
     Active Substance: LEVETIRACETAM
     Indication: MEDICATION ERROR
     Route: 048
     Dates: start: 20181013, end: 20181013
  2. CARBAMAZEPINE. [Suspect]
     Active Substance: CARBAMAZEPINE
     Indication: MEDICATION ERROR
     Route: 048
     Dates: start: 20181013, end: 20181013
  3. XANAX [Suspect]
     Active Substance: ALPRAZOLAM
     Indication: MEDICATION ERROR
     Route: 048
     Dates: start: 20181013, end: 20181013

REACTIONS (3)
  - Somnolence [Recovered/Resolved]
  - Medication error [Recovered/Resolved]
  - Cognitive disorder [Recovered/Resolved]

NARRATIVE: CASE EVENT DATE: 20181013
